FAERS Safety Report 19187376 (Version 3)
Quarter: 2022Q2

REPORT INFORMATION
  Report Type: Report from Study
  Country: US (occurrence: US)
  Receive Date: 20210427
  Receipt Date: 20220608
  Transmission Date: 20220721
  Serious: Yes (Death)
  Sender: FDA-Public Use
  Company Number: NVSC2021US095049

PATIENT
  Sex: Female

DRUGS (3)
  1. TRAVATAN Z [Suspect]
     Active Substance: TRAVOPROST
     Indication: Open angle glaucoma
     Dosage: UNK UNK, QHS
     Route: 061
  2. AZOPT [Suspect]
     Active Substance: BRINZOLAMIDE
     Indication: Open angle glaucoma
     Dosage: UNK UNK, TID
     Route: 061
  3. COMBIGAN [Concomitant]
     Active Substance: BRIMONIDINE TARTRATE\TIMOLOL MALEATE
     Indication: Open angle glaucoma
     Dosage: UNK, BID
     Route: 061

REACTIONS (1)
  - Death [Fatal]
